FAERS Safety Report 9661203 (Version 2)
Quarter: 2013Q4

REPORT INFORMATION
  Report Type: Spontaneous
  Country: BR (occurrence: BR)
  Receive Date: 20131031
  Receipt Date: 20131104
  Transmission Date: 20140711
  Serious: Yes (Hospitalization, Other)
  Sender: FDA-Public Use
  Company Number: BR-009507513-1310BRA011441

PATIENT
  Age: 1 Year
  Sex: Female
  Weight: 15 kg

DRUGS (8)
  1. SINGULAIR [Suspect]
     Indication: ALLERGIC COUGH
     Dosage: 4 MG, QD
     Route: 048
     Dates: start: 20110226, end: 201210
  2. SINGULAIR [Suspect]
     Indication: RHINITIS
  3. SINGULAIR BABY [Suspect]
  4. CLENIL (BECLOMETHASONE DIPROPIONATE) [Concomitant]
     Indication: ALLERGIC COUGH
     Dosage: UNK
     Route: 045
     Dates: start: 20100226, end: 20110226
  5. CLENIL (BECLOMETHASONE DIPROPIONATE) [Concomitant]
     Indication: RHINITIS
  6. HYDROXYZINE [Concomitant]
     Indication: ALLERGIC COUGH
     Dosage: UNK, BID
     Route: 048
     Dates: start: 201210, end: 201304
  7. HYDROXYZINE [Concomitant]
     Indication: RHINITIS
  8. RILAN [Concomitant]
     Dosage: UNK
     Dates: start: 201210

REACTIONS (8)
  - Petit mal epilepsy [Recovered/Resolved]
  - Pneumonia [Recovered/Resolved]
  - Crying [Recovered/Resolved]
  - External ear inflammation [Recovering/Resolving]
  - Vomiting [Unknown]
  - Drug administration error [Unknown]
  - Off label use [Unknown]
  - Off label use [Unknown]
